FAERS Safety Report 7872774-9 (Version None)
Quarter: 2011Q4

REPORT INFORMATION
  Report Type: 
  Country: None (occurrence: None)
  Receive Date: 20111030
  Receipt Date: 20110425
  Transmission Date: 20120403
  Serious: Yes (Hospitalization)
  Sender: FDA-Public Use
  Company Number: US-AMGEN-USASP2011021337

PATIENT
  Age: 63 Year
  Sex: Female

DRUGS (1)
  1. ENBREL [Suspect]
     Indication: RHEUMATOID ARTHRITIS
     Dosage: 50 MG, QWK
     Dates: start: 20090315

REACTIONS (6)
  - BACTERIAL INFECTION [None]
  - INJECTION SITE HAEMATOMA [None]
  - ALOPECIA [None]
  - CELLULITIS [None]
  - APHASIA [None]
  - DYSPHEMIA [None]
